FAERS Safety Report 10207842 (Version 1)
Quarter: 2014Q2

REPORT INFORMATION
  Report Type: Spontaneous
  Country: DE (occurrence: DE)
  Receive Date: 20140530
  Receipt Date: 20140530
  Transmission Date: 20141212
  Serious: Yes (Hospitalization)
  Sender: FDA-Public Use
  Company Number: DE-TEVA-484179GER

PATIENT
  Sex: Female

DRUGS (1)
  1. AMOXICILLIN-RATIOPHARM 750 MG FILMTABLETTEN [Suspect]
     Indication: NASOPHARYNGITIS
     Route: 048
     Dates: start: 201404

REACTIONS (8)
  - Hypersensitivity [Unknown]
  - Rash macular [Not Recovered/Not Resolved]
  - Pyrexia [Unknown]
  - Chills [Unknown]
  - Oropharyngeal pain [Unknown]
  - Rash pruritic [Unknown]
  - Impaired work ability [Not Recovered/Not Resolved]
  - Drug hypersensitivity [None]
